FAERS Safety Report 8613269-4 (Version None)
Quarter: 2012Q3

REPORT INFORMATION
  Report Type: 
  Country: None (occurrence: None)
  Receive Date: 20120822
  Receipt Date: 20120803
  Transmission Date: 20120928
  Serious: Yes (Other)
  Sender: FDA-Public Use
  Company Number: US-009507513-0507USA00449

PATIENT

DRUGS (5)
  1. FOSAMAX [Suspect]
     Indication: OSTEOPOROSIS
  2. FOSAMAX [Suspect]
     Indication: OSTEOPENIA
     Dosage: 35 MG, QW
     Route: 048
     Dates: start: 20050605
  3. FOSAMAX [Suspect]
     Dosage: UNK
     Route: 048
  4. PREMARIN [Concomitant]
  5. DIGOXIN [Concomitant]

REACTIONS (4)
  - BACK PAIN [None]
  - FEMUR FRACTURE [None]
  - LYMPHADENOPATHY [None]
  - LOW TURNOVER OSTEOPATHY [None]
